FAERS Safety Report 13384171 (Version 1)
Quarter: 2017Q1

REPORT INFORMATION
  Report Type: Spontaneous
  Country: US (occurrence: US)
  Receive Date: 20170329
  Receipt Date: 20170329
  Transmission Date: 20170429
  Serious: No
  Sender: FDA-Public Use
  Company Number: US-MYLANLABS-2016M1027210

PATIENT
  Age: 48 Year
  Sex: Male
  Weight: 91 kg

DRUGS (2)
  1. EMSAM [Suspect]
     Active Substance: SELEGILINE
     Dosage: 9 MG, QD, CHANGE DAILY
     Route: 062
     Dates: start: 201501, end: 201603
  2. EMSAM [Suspect]
     Active Substance: SELEGILINE
     Dosage: 9 MG, QD, CHANGE DAILY
     Route: 062
     Dates: start: 201606

REACTIONS (2)
  - Application site urticaria [Not Recovered/Not Resolved]
  - Application site pruritus [Not Recovered/Not Resolved]

NARRATIVE: CASE EVENT DATE: 201504
